FAERS Safety Report 10404335 (Version 1)
Quarter: 2014Q1

REPORT INFORMATION
  Report Type: Spontaneous
  Country: US (occurrence: None)
  Receive Date: 20140214
  Receipt Date: 20140214
  Transmission Date: 20141002
  Serious: No
  Sender: FDA-Public Use
  Company Number: A-US2013-92349

PATIENT
  Age: 18 Year
  Sex: Male

DRUGS (2)
  1. OPSUMIT (MACITENTAN) [Suspect]
     Indication: PULMONARY HYPERTENSION
     Route: 048
  2. ADCIRCA (TADALAFIL) [Concomitant]

REACTIONS (4)
  - Headache [None]
  - Flushing [None]
  - Fatigue [None]
  - Influenza like illness [None]
